FAERS Safety Report 5822285-7 (Version None)
Quarter: 2008Q3

REPORT INFORMATION
  Report Type: 
  Country: None (occurrence: None)
  Receive Date: 20080725
  Receipt Date: 20080502
  Transmission Date: 20090109
  Serious: No
  Sender: FDA-Public Use
  Company Number: US-AMGEN-KDL277606

PATIENT
  Sex: Female
  Weight: 81.7 kg

DRUGS (8)
  1. PROCRIT [Suspect]
     Indication: ANAEMIA OF MALIGNANT DISEASE
     Dates: start: 20080327
  2. PAXIL [Concomitant]
  3. ATIVAN [Concomitant]
  4. TYLENOL [Concomitant]
  5. GEMZAR [Concomitant]
  6. CARBOPLATIN [Concomitant]
  7. NEULASTA [Concomitant]
  8. UNSPECIFIED MEDICATION [Concomitant]

REACTIONS (3)
  - ADVERSE DRUG REACTION [None]
  - BLOOD PRESSURE INCREASED [None]
  - HEADACHE [None]
